FAERS Safety Report 5498524-1 (Version None)
Quarter: 2007Q4

REPORT INFORMATION
  Report Type: 
  Country: None (occurrence: None)
  Receive Date: 20071026
  Receipt Date: 20071017
  Transmission Date: 20080405
  Serious: Yes (Other)
  Sender: FDA-Public Use
  Company Number: PHBS2007GT17302

PATIENT
  Age: 67 Year
  Sex: Female

DRUGS (3)
  1. DIOVAN HCT [Suspect]
     Indication: HYPERTENSION
     Dosage: 160/12.5 MG/DAY
     Route: 048
     Dates: start: 20070424
  2. METFORMIN [Concomitant]
     Dosage: 500 MG, BID
     Route: 048
  3. HYPERLIPEN [Concomitant]
     Dosage: 100 MG/DAY
     Route: 048

REACTIONS (2)
  - EXTRASYSTOLES [None]
  - PALPITATIONS [None]
